FAERS Safety Report 4568995-3 (Version None)
Quarter: 2005Q1

REPORT INFORMATION
  Report Type: 
  Country: None (occurrence: None)
  Receive Date: 20050126
  Receipt Date: 20050126
  Transmission Date: 20050727
  Serious: Yes (Hospitalization)
  Sender: FDA-Public Use
  Company Number: None

PATIENT
  Age: 78 Year
  Sex: Male
  Weight: 69.8539 kg

DRUGS (14)
  1. GATIFLOXACIN [Suspect]
     Indication: PNEUMONIA
     Dosage: 400MG BY MOUTH (1) DOSE
     Route: 048
  2. ALBUTEROL [Concomitant]
  3. DIGOXIN [Concomitant]
  4. DOCUSATE [Concomitant]
  5. FUROSEMIDE [Concomitant]
  6. POTASSIUM CHLORIDE [Concomitant]
  7. LISINOPRIL [Concomitant]
  8. METOPROLOL [Concomitant]
  9. NITROGLYCERIN [Concomitant]
  10. GLYBURIDE [Concomitant]
  11. SIMVASTATIN [Concomitant]
  12. TERAZOSIN [Concomitant]
  13. WARFARIN SODIUM [Concomitant]
  14. SERTRALINE [Concomitant]

REACTIONS (3)
  - CONVULSION [None]
  - HYPOGLYCAEMIA [None]
  - LETHARGY [None]
